FAERS Safety Report 10601044 (Version 2)
Quarter: 2015Q1

REPORT INFORMATION
  Report Type: Report from Study
  Country: US (occurrence: US)
  Receive Date: 20141124
  Receipt Date: 20150107
  Transmission Date: 20150720
  Serious: Yes (Death)
  Sender: FDA-Public Use
  Company Number: PHEH2014US023382

PATIENT
  Age: 86 Year
  Sex: Female
  Weight: 43.84 kg

DRUGS (2)
  1. EXJADE [Suspect]
     Active Substance: DEFERASIROX
     Indication: MYELODYSPLASTIC SYNDROME
     Route: 065
     Dates: start: 20120619, end: 20140831
  2. EXJADE [Suspect]
     Active Substance: DEFERASIROX
     Indication: REFRACTORY CYTOPENIA WITH UNILINEAGE DYSPLASIA
     Dosage: 250 MG, DAILY
     Route: 048
     Dates: start: 20141008

REACTIONS (2)
  - Performance status decreased [Unknown]
  - Death [Fatal]

NARRATIVE: CASE EVENT DATE: 201411
